FAERS Safety Report 9016971 (Version 5)
Quarter: 2014Q1

REPORT INFORMATION
  Report Type: Spontaneous
  Country: US (occurrence: US)
  Receive Date: 20130117
  Receipt Date: 20140311
  Transmission Date: 20141002
  Serious: Yes (Hospitalization, Disabling, Other)
  Sender: FDA-Public Use
  Company Number: US-009507513-1301USA006342

PATIENT
  Sex: Female

DRUGS (5)
  1. FOSAMAX [Suspect]
     Indication: OSTEOPOROSIS
     Dosage: 70 MG, QW
     Route: 048
     Dates: start: 200110, end: 20110111
  2. ALENDRONATE SODIUM [Suspect]
     Indication: OSTEOPOROSIS
     Dosage: 70 MG, QW
     Route: 048
     Dates: start: 20080521, end: 201101
  3. CENTRUM SILVER [Concomitant]
     Dosage: QD
     Dates: start: 1997
  4. VITAMIN E [Concomitant]
     Dosage: 400 IU, QD
     Dates: start: 1997
  5. CALCIUM (UNSPECIFIED) (+) VITAMIN D (UNSPECIFIED) [Concomitant]
     Dosage: 1200 MG, QD
     Dates: start: 1997

REACTIONS (9)
  - Femur fracture [Unknown]
  - Removal of internal fixation [Unknown]
  - Haemorrhage [Unknown]
  - Foot deformity [Unknown]
  - Gait disturbance [Unknown]
  - Osteopenia [Unknown]
  - Gastrooesophageal reflux disease [Unknown]
  - Femur fracture [Unknown]
  - Intramedullary rod insertion [Unknown]
